FAERS Safety Report 4764245-3 (Version None)
Quarter: 2005Q3

REPORT INFORMATION
  Report Type: 
  Country: None (occurrence: None)
  Receive Date: 20050906
  Receipt Date: 20050829
  Transmission Date: 20060218
  Serious: Yes (Other)
  Sender: FDA-Public Use
  Company Number: 2005-07-2152

PATIENT
  Age: 38 Year
  Sex: Female
  Weight: 108.4097 kg

DRUGS (10)
  1. PEG-INTRON [Suspect]
     Indication: HEPATITIS C
     Dosage: SEE IMAGE
     Route: 058
     Dates: start: 20020901, end: 20040617
  2. PEG-INTRON [Suspect]
     Indication: HEPATITIS C
     Dosage: SEE IMAGE
     Route: 058
     Dates: start: 20030901
  3. REBETOL [Suspect]
     Indication: HEPATITIS C
     Dosage: SEE IMAGE
     Route: 048
     Dates: start: 20020901, end: 20040421
  4. EFFEXOR XR 9VENLAFAXINE HCL) [Concomitant]
  5. ATIVAN [Concomitant]
  6. PAXIL [Concomitant]
  7. ZITHROMAX [Concomitant]
  8. TALWIN [Concomitant]
  9. BACTRIM [Concomitant]
  10. HUMBID [Concomitant]

REACTIONS (15)
  - ABDOMINAL PAIN [None]
  - BLOOD PRESSURE INCREASED [None]
  - BRONCHITIS [None]
  - CRYING [None]
  - DENTAL CARIES [None]
  - DIARRHOEA [None]
  - DRUG DOSE OMISSION [None]
  - DYSPEPSIA [None]
  - ECONOMIC PROBLEM [None]
  - IRRITABILITY [None]
  - NAUSEA [None]
  - SALIVARY GLAND CALCULUS [None]
  - TOOTH EXTRACTION [None]
  - TOOTH FRACTURE [None]
  - WHITE BLOOD CELL COUNT DECREASED [None]
